FAERS Safety Report 8448835-2 (Version None)
Quarter: 2012Q2

REPORT INFORMATION
  Report Type: 
  Country: None (occurrence: None)
  Receive Date: 20120611
  Receipt Date: 20120531
  Transmission Date: 20120825
  Serious: Yes (Life-Threatening)
  Sender: FDA-Public Use
  Company Number: 2012000133

PATIENT

DRUGS (1)
  1. ACEON [Suspect]
     Indication: RENAL HYPERTENSION
     Dosage: 4 MG, BID, ORAL
     Route: 048
     Dates: start: 20120401, end: 20120501

REACTIONS (2)
  - BRADYCARDIA [None]
  - HYPERKALAEMIA [None]
